FAERS Safety Report 7369437-5 (Version None)
Quarter: 2011Q1

REPORT INFORMATION
  Report Type: 
  Country: None (occurrence: None)
  Receive Date: 20110323
  Receipt Date: 20110311
  Transmission Date: 20110831
  Serious: Yes (Other)
  Sender: FDA-Public Use
  Company Number: US-AMGEN-USASP2011013754

PATIENT
  Age: 75 Year
  Sex: Male

DRUGS (1)
  1. ENBREL [Suspect]
     Indication: RHEUMATOID ARTHRITIS
     Dates: start: 20001201

REACTIONS (5)
  - ARTHRITIS [None]
  - MOBILITY DECREASED [None]
  - JOINT STIFFNESS [None]
  - PARAESTHESIA [None]
  - HYPOAESTHESIA [None]
